FAERS Safety Report 8733629 (Version 2)
Quarter: 2012Q4

REPORT INFORMATION
  Report Type: 
  Country: MX (occurrence: MX)
  Receive Date: 20120821
  Receipt Date: 20121008
  Transmission Date: 20130627
  Serious: Yes (Hospitalization, Other)
  Sender: FDA-Public Use
  Company Number: PHHY2012MX071509

PATIENT
  Age: 89 Year
  Sex: Male

DRUGS (5)
  1. EXELON PATCH [Suspect]
     Indication: DEMENTIA ALZHEIMER^S TYPE
     Dosage: 4.6 mg, QD
     Route: 062
     Dates: end: 20120622
  2. LASIX [Concomitant]
     Dosage: UNK UKN, UNK
  3. LACTULOSE [Concomitant]
     Dosage: UNK UKN, UNK
  4. CINITAPRIDE [Concomitant]
     Dosage: UNK UKN, UNK
  5. AMINO ACIDS NOS [Concomitant]
     Dosage: UNK UKN, UNK

REACTIONS (7)
  - Abdominal adhesions [Recovering/Resolving]
  - Ileus paralytic [Unknown]
  - Eating disorder [Unknown]
  - Road traffic accident [Unknown]
  - Contusion [Unknown]
  - Excoriation [Unknown]
  - Skin lesion [Unknown]
